FAERS Safety Report 14110452 (Version 1)
Quarter: 2017Q4

REPORT INFORMATION
  Report Type: Spontaneous
  Country: US (occurrence: US)
  Receive Date: 20171020
  Receipt Date: 20171020
  Transmission Date: 20180321
  Serious: No
  Sender: FDA-Public Use
  Company Number: US-TEVA-698505USA

PATIENT
  Age: 47 Year
  Sex: Female

DRUGS (1)
  1. PHENTERMINE. [Suspect]
     Active Substance: PHENTERMINE
     Route: 065
     Dates: start: 20160717

REACTIONS (2)
  - Feeling jittery [Unknown]
  - Agitation [Unknown]

NARRATIVE: CASE EVENT DATE: 201607
